FAERS Safety Report 7228862-3 (Version None)
Quarter: 2011Q1

REPORT INFORMATION
  Report Type: 
  Country: None (occurrence: None)
  Receive Date: 20110117
  Receipt Date: 20110105
  Transmission Date: 20110831
  Serious: Yes (Other)
  Sender: FDA-Public Use
  Company Number: ES-ELI_LILLY_AND_COMPANY-ES201101000911

PATIENT
  Sex: Female
  Weight: 65 kg

DRUGS (5)
  1. FORTEO [Suspect]
     Indication: OSTEOPOROSIS
     Dosage: 20 UG, DAILY (1/D)
     Route: 058
     Dates: start: 20100713
  2. CONDROSULF [Concomitant]
     Indication: ARTHRITIS
     Dosage: UNK, 2/D
     Route: 048
  3. DAFLON [Concomitant]
     Indication: BLOOD DISORDER
     Dosage: 2 IN TE MORNINGS (ONLY IN SUMMER)
     Route: 048
  4. IBERCAL [Concomitant]
     Indication: OSTEOPOROSIS
     Dosage: UNK, EACH EVENING
     Route: 048
  5. EFFERALGAN                         /00020001/ [Concomitant]
     Indication: PAIN
     Dosage: UNK, AS NEEDED
     Route: 048

REACTIONS (1)
  - RECTAL HAEMORRHAGE [None]
